FAERS Safety Report 5520524-3 (Version None)
Quarter: 2007Q4

REPORT INFORMATION
  Report Type: 
  Country: None (occurrence: None)
  Receive Date: 20071115
  Receipt Date: 20071107
  Transmission Date: 20080405
  Serious: Yes (Other)
  Sender: FDA-Public Use
  Company Number: 2007334806

PATIENT
  Age: 68 Year
  Sex: Female
  Weight: 62.1428 kg

DRUGS (2)
  1. LISTERINE WHITENING QUICK DISSOLVING STRIPS (NO ACTIVE INGREDIENT) [Suspect]
     Indication: DENTAL DISORDER PROPHYLAXIS
     Dosage: ORAL
     Route: 048
     Dates: start: 20071102, end: 20071107
  2. SYNTHROID [Concomitant]

REACTIONS (1)
  - CHEMICAL BURN OF SKIN [None]
